FAERS Safety Report 9462751 (Version 2)
Quarter: 2013Q3

REPORT INFORMATION
  Report Type: Spontaneous
  Country: JP (occurrence: None)
  Receive Date: 20130814
  Receipt Date: 20130830
  Transmission Date: 20140515
  Serious: Yes (Hospitalization)
  Sender: FDA-Public Use
  Company Number: DSJ-2013-17358

PATIENT
  Age: 72 Year
  Sex: Male

DRUGS (8)
  1. OLMETEC [Suspect]
     Indication: PRODUCT USED FOR UNKNOWN INDICATION
     Dosage: 20 MG (20 MG, 1 IN 1 D), PER ORAL
     Route: 048
     Dates: start: 20130118, end: 20130324
  2. LITHIUM CARBONATE [Suspect]
     Dosage: 600 MG (200 MG, 3 IN 1 D0, PER ORAL
     Route: 048
  3. MIANSERIN (MIASERIN HYDROCHLORIDE) (MIANSERIN HYDROCHLORIDE) [Concomitant]
  4. NITRAZEPAM (NITRAZEPAM) (NITRAZEPAM) [Concomitant]
  5. BROTILOZAM (BROTILOZAM) (BROTILOZAM) [Concomitant]
  6. NILVADIPINE (NILVADIPINE) (NILVADIPINE) [Concomitant]
  7. ALLOPURINOL (ALLOPURINOL) (ALLOPURINOL) [Concomitant]
  8. ROSUVASTATIN (ROSUVASTATIN) (ROSUVASTATIN) [Concomitant]

REACTIONS (8)
  - Toxicity to various agents [None]
  - Drug interaction [None]
  - Haemodialysis [None]
  - Hyperreflexia [None]
  - Dyslalia [None]
  - Hyperkalaemia [None]
  - Rhabdomyolysis [None]
  - Cardiac failure [None]
